FAERS Safety Report 4889429-5 (Version None)
Quarter: 2006Q1

REPORT INFORMATION
  Report Type: 
  Country: None (occurrence: None)
  Receive Date: 20060120
  Receipt Date: 20060111
  Transmission Date: 20060701
  Serious: Yes (Hospitalization, Disabling, Other)
  Sender: FDA-Public Use
  Company Number: 2006007705

PATIENT
  Age: 43 Year
  Sex: Male
  Weight: 77.1115 kg

DRUGS (2)
  1. NEURONTIN [Suspect]
     Indication: COMPLEX REGIONAL PAIN SYNDROME
     Dosage: 3200 MG
  2. AGRYLIN [Concomitant]

REACTIONS (10)
  - ACCIDENT [None]
  - CRUSH INJURY [None]
  - DRUG INEFFECTIVE [None]
  - ECONOMIC PROBLEM [None]
  - HYPERTENSION [None]
  - IMPAIRED WORK ABILITY [None]
  - MULTIPLE FRACTURES [None]
  - MYOCARDIAL INFARCTION [None]
  - NERVE INJURY [None]
  - VERTEBRAL INJURY [None]
